FAERS Safety Report 8965561 (Version 1)
Quarter: 2012Q4

REPORT INFORMATION
  Report Type: Spontaneous
  Country: US (occurrence: None)
  Receive Date: 20121212
  Receipt Date: 20121212
  Transmission Date: 20130627
  Serious: Yes (Hospitalization)
  Sender: FDA-Public Use
  Company Number: None

PATIENT
  Age: 71 Year
  Sex: Female
  Weight: 66.23 kg

DRUGS (6)
  1. 5FU [Suspect]
     Indication: METASTATIC COLON CANCER
     Dates: start: 20121116, end: 20121120
  2. LEUCOVORIN [Suspect]
  3. IRINOTECAN [Suspect]
  4. REGORAFENIB [Suspect]
     Dosage: 160mg  days 4-10s  18-24
  5. PLACEBO [Suspect]
  6. HYDROCHLOROTHIAZIDE [Concomitant]

REACTIONS (4)
  - Pyrexia [None]
  - Febrile neutropenia [None]
  - Tooth infection [None]
  - Anosmia [None]
